FAERS Safety Report 19093650 (Version 1)
Quarter: 2021Q2

REPORT INFORMATION
  Report Type: Spontaneous
  Country: US (occurrence: US)
  Receive Date: 20210405
  Receipt Date: 20210405
  Transmission Date: 20210717
  Serious: No
  Sender: FDA-Public Use
  Company Number: US-TAKEDA-2021TUS021807

PATIENT
  Sex: Female
  Weight: 135 kg

DRUGS (14)
  1. DIPHENHYDRAMINE. [Concomitant]
     Active Substance: DIPHENHYDRAMINE
  2. METOPROLOL. [Concomitant]
     Active Substance: METOPROLOL
  3. BREO ELLIPTA [Concomitant]
     Active Substance: FLUTICASONE FUROATE\VILANTEROL TRIFENATATE
  4. DALIRESP [Concomitant]
     Active Substance: ROFLUMILAST
  5. MUCINEX [Concomitant]
     Active Substance: GUAIFENESIN
  6. OXYGEN. [Concomitant]
     Active Substance: OXYGEN
  7. QUINAPRIL. [Concomitant]
     Active Substance: QUINAPRIL
  8. SODIUM CHLORIDE IV [Concomitant]
     Active Substance: SODIUM CHLORIDE
  9. YUPELRI [Concomitant]
     Active Substance: REVEFENACIN
  10. PLAVIX [Concomitant]
     Active Substance: CLOPIDOGREL BISULFATE
  11. ARALAST NP [Suspect]
     Active Substance: .ALPHA.1-PROTEINASE INHIBITOR HUMAN
     Indication: ALPHA-1 ANTITRYPSIN DEFICIENCY
     Dosage: 60 MILLIGRAM/KILOGRAM, 1/WEEK
     Route: 042
     Dates: start: 20090327
  12. ARALAST NP [Suspect]
     Active Substance: .ALPHA.1-PROTEINASE INHIBITOR HUMAN
     Indication: ALPHA-1 ANTITRYPSIN DEFICIENCY
     Dosage: 60 MILLIGRAM/KILOGRAM, 1/WEEK
     Route: 042
     Dates: start: 20090327
  13. EPINEPHRINE. [Concomitant]
     Active Substance: EPINEPHRINE
  14. ATORVASTATIN [Concomitant]
     Active Substance: ATORVASTATIN

REACTIONS (1)
  - Fall [Unknown]
